FAERS Safety Report 11154928 (Version 1)
Quarter: 2015Q2

REPORT INFORMATION
  Report Type: Spontaneous
  Country: GB (occurrence: None)
  Receive Date: 20150529
  Receipt Date: 20150529
  Transmission Date: 20150821
  Serious: Yes (Other)
  Sender: FDA-Public Use
  Company Number: INT_00775_2015

PATIENT
  Age: 81 Year

DRUGS (1)
  1. PACLITAXEL (PACLITAXEL) (HQ SPECIALTY) [Suspect]
     Active Substance: PACLITAXEL
     Indication: SKIN ANGIOSARCOMA
     Dosage: (175 MG/M2 1X/WEEK, 6 CYCLES)

REACTIONS (1)
  - Lethargy [None]
